FAERS Safety Report 10272461 (Version 1)
Quarter: 2014Q2

REPORT INFORMATION
  Report Type: Spontaneous
  Country: US (occurrence: None)
  Receive Date: 20140627
  Receipt Date: 20140627
  Transmission Date: 20141212
  Serious: Yes (Hospitalization)
  Sender: FDA-Public Use
  Company Number: US-H14001-14-00123

PATIENT
  Age: 75 Year
  Sex: Male

DRUGS (4)
  1. TOPIRAMATE (TOPIRAMATE) (TOPIRAMATE) [Suspect]
     Indication: PRODUCT USED FOR UNKNOWN INDICATION
     Dosage: INAPPROPRIATE DOSE IN RENAL
  2. AMITRIPTYLINE (AMITRIPTYLINE) [Concomitant]
  3. CHLORDIAZEPOXIDE(CHLORDIAZEPOXIDE) [Concomitant]
  4. OLANZAPINE (OLANZAPINE) (OLANZAPINE) [Concomitant]

REACTIONS (5)
  - Aggression [None]
  - Condition aggravated [None]
  - Disease recurrence [None]
  - Pneumonia [None]
  - Incorrect dose administered [None]
